FAERS Safety Report 17829958 (Version 1)
Quarter: 2020Q2

REPORT INFORMATION
  Report Type: Spontaneous
  Country: US (occurrence: US)
  Receive Date: 20200527
  Receipt Date: 20200527
  Transmission Date: 20200714
  Serious: Yes (Other)
  Sender: FDA-Public Use
  Company Number: US-MYLANLABS-2020M1051422

PATIENT
  Sex: Female

DRUGS (2)
  1. DESVENLAFAXINE SUCCINATE. [Suspect]
     Active Substance: DESVENLAFAXINE SUCCINATE
     Indication: DEPRESSION
     Dosage: UNK
     Dates: start: 20170818
  2. GABAPENTIN PFIZER [Suspect]
     Active Substance: GABAPENTIN
     Indication: PRODUCT USED FOR UNKNOWN INDICATION
     Dosage: UNK

REACTIONS (7)
  - Withdrawal syndrome [Recovered/Resolved]
  - Burning sensation [Recovered/Resolved]
  - Depression [Recovered/Resolved]
  - Colitis microscopic [Not Recovered/Not Resolved]
  - Anxiety [Recovered/Resolved]
  - Diarrhoea [Not Recovered/Not Resolved]
  - Irritable bowel syndrome [Recovered/Resolved]
